FAERS Safety Report 8475410-6 (Version None)
Quarter: 2012Q2

REPORT INFORMATION
  Report Type: 
  Country: None (occurrence: None)
  Receive Date: 20120628
  Receipt Date: 20120622
  Transmission Date: 20120825
  Serious: Yes (Other)
  Sender: FDA-Public Use
  Company Number: US-PFIZER INC-2012137775

PATIENT
  Sex: Female
  Weight: 61 kg

DRUGS (3)
  1. DEPO-PROVERA [Suspect]
     Dosage: 150 MG, SINGLE
     Route: 030
     Dates: start: 20100201, end: 20100201
  2. CLARITIN [Concomitant]
     Dosage: UNK
  3. DEPO-PROVERA [Suspect]
     Indication: CONTRACEPTION
     Dosage: UNK
     Route: 030
     Dates: start: 20090101, end: 20100201

REACTIONS (1)
  - BREAST CANCER [None]
